FAERS Safety Report 16420995 (Version 3)
Quarter: 2019Q2

REPORT INFORMATION
  Report Type: Spontaneous
  Country: JP (occurrence: JP)
  Receive Date: 20190612
  Receipt Date: 20190621
  Transmission Date: 20190711
  Serious: Yes (Death, Other)
  Sender: FDA-Public Use
  Company Number: JP-PFIZER INC-2019248390

PATIENT
  Age: 28 Year
  Sex: Female

DRUGS (15)
  1. LEVOFLOXACIN. [Suspect]
     Active Substance: LEVOFLOXACIN
     Dosage: UNK
     Dates: start: 2014
  2. FLUCYTOSINE. [Suspect]
     Active Substance: FLUCYTOSINE
     Indication: SCOPULARIOPSIS INFECTION
     Dosage: UNK
     Dates: start: 2014
  3. MINOCYCLINE [Suspect]
     Active Substance: MINOCYCLINE\MINOCYCLINE HYDROCHLORIDE
     Indication: SCOPULARIOPSIS INFECTION
     Dosage: UNK
     Dates: start: 2014
  4. ITRACONAZOLE. [Suspect]
     Active Substance: ITRACONAZOLE
     Indication: SCOPULARIOPSIS INFECTION
     Dosage: UNK
     Dates: start: 2014
  5. AMPHOTERICIN B. [Suspect]
     Active Substance: AMPHOTERICIN B
     Dosage: 10 MG/KG, DAILY
     Dates: start: 2014
  6. IDARUBICIN [Concomitant]
     Active Substance: IDARUBICIN
     Indication: ACUTE MYELOID LEUKAEMIA
     Dosage: UNK
  7. MEROPENEM. [Suspect]
     Active Substance: MEROPENEM
     Indication: ANTIBIOTIC THERAPY
     Dosage: UNK
     Route: 041
     Dates: start: 2014
  8. FLUCONAZOLE. [Suspect]
     Active Substance: FLUCONAZOLE
     Indication: SCOPULARIOPSIS INFECTION
     Dosage: 200 MG/BODY/DAY (PROPHYLACTIC)
     Dates: start: 2014, end: 2014
  9. MICAFUNGIN. [Suspect]
     Active Substance: MICAFUNGIN SODIUM
     Indication: SCOPULARIOPSIS INFECTION
     Dosage: UNK
     Dates: start: 2014
  10. CYTARABINE. [Concomitant]
     Active Substance: CYTARABINE
     Dosage: UNK (SECOND SALVAGE CHEMOTHERAPY)
     Dates: start: 201410
  11. VORICONAZOLE. [Suspect]
     Active Substance: VORICONAZOLE
     Indication: SCOPULARIOPSIS INFECTION
     Dosage: 6 MG/KG, 2X/DAY (LOADING DOSE TWICE)
     Dates: start: 2014
  12. VORICONAZOLE. [Suspect]
     Active Substance: VORICONAZOLE
     Dosage: 4 MG/KG, 2X/DAY (WAS ADDED 4 DAYS LATER)
     Dates: start: 2014
  13. AMPHOTERICIN B. [Suspect]
     Active Substance: AMPHOTERICIN B
     Indication: SCOPULARIOPSIS INFECTION
     Dosage: 5 MG/KG, DAILY
     Dates: start: 2014
  14. CYTARABINE. [Concomitant]
     Active Substance: CYTARABINE
     Indication: ACUTE MYELOID LEUKAEMIA
     Dosage: UNK
  15. DAUNORUBICIN [Concomitant]
     Active Substance: DAUNORUBICIN
     Indication: ACUTE MYELOID LEUKAEMIA
     Dosage: UNK (SECOND SALVAGE CHEMOTHERAPY)
     Dates: start: 201410

REACTIONS (4)
  - Pulmonary alveolar haemorrhage [Unknown]
  - Renal failure [Unknown]
  - Drug ineffective [Fatal]
  - Drug ineffective [Fatal]

NARRATIVE: CASE EVENT DATE: 2014
